FAERS Safety Report 9761254 (Version 2)
Quarter: 2013Q4

REPORT INFORMATION
  Report Type: Spontaneous
  Country: AU (occurrence: None)
  Receive Date: 20131212
  Receipt Date: 20131223
  Transmission Date: 20140711
  Serious: Yes (Other)
  Sender: FDA-Public Use
  Company Number: 2013-003834

PATIENT
  Age: 75 Year
  Sex: 0

DRUGS (2)
  1. ACTONEL [Suspect]
     Dosage: 150 MG ONCE MONTHLY, ORAL
     Route: 048
     Dates: start: 20111008
  2. WARFARIN ( WARFARIN) [Concomitant]

REACTIONS (4)
  - Drug hypersensitivity [None]
  - Miliaria [None]
  - Convulsion [None]
  - Miliaria [None]
